FAERS Safety Report 4862561-8 (Version None)
Quarter: 2005Q4

REPORT INFORMATION
  Report Type: 
  Country: None (occurrence: None)
  Receive Date: 20051221
  Receipt Date: 20051214
  Transmission Date: 20060501
  Serious: Yes (Hospitalization)
  Sender: FDA-Public Use
  Company Number: FR-GLAXOSMITHKLINE-B0403602A

PATIENT
  Age: 92 Year
  Sex: Female
  Weight: 57 kg

DRUGS (9)
  1. DEROXAT [Suspect]
     Indication: DEPRESSION
     Route: 048
     Dates: end: 20050928
  2. STILNOX [Suspect]
     Dosage: 10MG PER DAY
     Route: 048
  3. NITRODERM [Suspect]
     Indication: MYOCARDIAL ISCHAEMIA
     Dosage: 1PAT PER DAY
     Route: 061
  4. XANAX [Suspect]
     Dosage: .125MG THREE TIMES PER DAY
     Route: 048
  5. ASPEGIC 325 [Suspect]
     Dosage: 1UNIT PER DAY
     Route: 048
     Dates: end: 20051004
  6. COZAAR [Suspect]
     Dosage: 50MG PER DAY
     Route: 048
  7. ARIMIDEX [Concomitant]
  8. MOVICOL [Concomitant]
  9. ARTIFICIAL TEARS [Concomitant]

REACTIONS (2)
  - GENERAL PHYSICAL HEALTH DETERIORATION [None]
  - HYPONATRAEMIA [None]
